FAERS Safety Report 7002248-9 (Version None)
Quarter: 2010Q3

REPORT INFORMATION
  Report Type: 
  Country: None (occurrence: None)
  Receive Date: 20100920
  Receipt Date: 20100628
  Transmission Date: 20110219
  Serious: No
  Sender: FDA-Public Use
  Company Number: US-ASTRAZENECA-2010SE23365

PATIENT
  Age: 18343 Day
  Sex: Female

DRUGS (2)
  1. SEROQUEL XR [Suspect]
     Indication: PANIC ATTACK
     Route: 048
     Dates: start: 20100101
  2. SEROQUEL XR [Suspect]
     Indication: ANXIETY
     Route: 048
     Dates: start: 20100101

REACTIONS (1)
  - FEELING HOT [None]
